FAERS Safety Report 15591536 (Version 1)
Quarter: 2020Q3

REPORT INFORMATION
  Report Type: Report from Study
  Country: US (occurrence: US)
  Receive Date: 20181106
  Receipt Date: 20181106
  Transmission Date: 20201104
  Serious: Yes (Hospitalization, Other)
  Sender: FDA-Public Use
  Company Number: US-ASTRAZENECA-2018SF38813

PATIENT
  Age: 746 Month
  Sex: Female
  Weight: 49 kg

DRUGS (2)
  1. TREMELIMUMAB. [Suspect]
     Active Substance: TREMELIMUMAB
     Indication: LUNG NEOPLASM MALIGNANT
     Dosage: 75 MG OVER 60 MIN ON DAY 1
     Route: 042
     Dates: start: 20181003
  2. MEDI4736 [Suspect]
     Active Substance: DURVALUMAB
     Indication: LUNG NEOPLASM MALIGNANT
     Dosage: 1500 MG OVER 60 MIN ON DAY 1
     Route: 042
     Dates: start: 20181003

REACTIONS (6)
  - Nausea [Recovered/Resolved]
  - Colitis [Unknown]
  - Decreased appetite [Unknown]
  - Diarrhoea [Recovered/Resolved]
  - Vomiting [Recovered/Resolved]
  - Dehydration [Recovered/Resolved]

NARRATIVE: CASE EVENT DATE: 20181008
